FAERS Safety Report 8008074-6 (Version None)
Quarter: 2011Q4

REPORT INFORMATION
  Report Type: 
  Country: None (occurrence: None)
  Receive Date: 20111227
  Receipt Date: 20111221
  Transmission Date: 20120403
  Serious: Yes (Other)
  Sender: FDA-Public Use
  Company Number: PHEH2011US012464

PATIENT
  Sex: Female

DRUGS (1)
  1. GILENYA [Suspect]
     Dosage: UNK UKN, UNK
     Route: 048

REACTIONS (4)
  - TRIGEMINAL NEURALGIA [None]
  - FEELING ABNORMAL [None]
  - EYE MOVEMENT DISORDER [None]
  - DIPLOPIA [None]
